FAERS Safety Report 10039451 (Version 3)
Quarter: 2014Q2

REPORT INFORMATION
  Report Type: Report from Study
  Country: HR (occurrence: HR)
  Receive Date: 20140326
  Receipt Date: 20140505
  Transmission Date: 20141212
  Serious: Yes (Hospitalization)
  Sender: FDA-Public Use
  Company Number: HR-ROCHE-1369066

PATIENT
  Age: 82 Year
  Sex: Male
  Weight: 70 kg

DRUGS (6)
  1. AVASTIN [Suspect]
     Indication: COLORECTAL CANCER METASTATIC
     Route: 042
     Dates: start: 20140305, end: 20140305
  2. 5-FU [Suspect]
     Indication: COLORECTAL CANCER METASTATIC
     Route: 042
     Dates: start: 20140305, end: 20140305
  3. 5-FU [Suspect]
     Dosage: 1ST AND 2ND DAY OF CYCLE
     Route: 042
  4. 5-FU [Suspect]
     Route: 042
     Dates: start: 20140408
  5. LEUCOVORIN [Suspect]
     Indication: COLORECTAL CANCER METASTATIC
     Route: 042
  6. LEUCOVORIN [Suspect]
     Route: 042
     Dates: start: 20140408

REACTIONS (4)
  - Pulmonary embolism [Recovered/Resolved]
  - Supraventricular extrasystoles [Recovered/Resolved]
  - Hypertension [Recovered/Resolved]
  - Exercise tolerance decreased [Recovered/Resolved]
